FAERS Safety Report 24336654 (Version 1)
Quarter: 2024Q3

REPORT INFORMATION
  Report Type: Spontaneous
  Country: DE (occurrence: DE)
  Receive Date: 20240919
  Receipt Date: 20240919
  Transmission Date: 20241016
  Serious: Yes (Other)
  Sender: JOHNSON AND JOHNSON
  Company Number: DE-EMBRYOTOX-202310115

PATIENT
  Sex: Male
  Weight: 2.835 kg

DRUGS (8)
  1. STELARA [Suspect]
     Active Substance: USTEKINUMAB
     Indication: Crohn^s disease
     Dosage: 90 [MG ]/ EVERY 8 WKS
     Route: 064
     Dates: start: 20230421, end: 20240126
  2. MESALAMINE [Suspect]
     Active Substance: MESALAMINE
     Indication: Crohn^s disease
     Dosage: 4800 [MG/D ]/ 2400 MG/D USUALLY, OTHERWISE 1200 MG/D OR AS REQUIRED
     Route: 064
     Dates: start: 20230421, end: 20240126
  3. IRON [Concomitant]
     Active Substance: IRON
     Indication: Iron deficiency
     Route: 064
     Dates: start: 20231214, end: 20231214
  4. MISOPROSTOL [Concomitant]
     Active Substance: MISOPROSTOL
     Indication: Labour induction
     Route: 064
  5. MESALAMINE [Concomitant]
     Active Substance: MESALAMINE
     Indication: Crohn^s disease
     Dosage: 4000 [MG/D ]/ TAKEN AS REQUIRED: GW 11.4 TO 13.4, GW 25.4 TO 27.0, GW 38.3 TO 39.2
     Route: 064
     Dates: start: 20230711, end: 20240121
  6. HYDROCORTISONE [Concomitant]
     Active Substance: HYDROCORTISONE\HYDROCORTISONE ACETATE
     Indication: Localised infection
     Route: 064
     Dates: start: 20230718, end: 20230730
  7. ADVANTAN S [Concomitant]
     Indication: Localised infection
     Route: 064
     Dates: start: 20230725, end: 20230801
  8. CLOTRIMAZOLE [Concomitant]
     Active Substance: CLOTRIMAZOLE
     Indication: Fungal foot infection
     Route: 064
     Dates: start: 20230719, end: 20230727

REACTIONS (2)
  - Small for dates baby [Recovered/Resolved]
  - Foetal exposure during pregnancy [Unknown]

NARRATIVE: CASE EVENT DATE: 20240101
